FAERS Safety Report 9420425 (Version 1)
Quarter: 2013Q3

REPORT INFORMATION
  Report Type: Spontaneous
  Country: IT (occurrence: None)
  Receive Date: 20130723
  Receipt Date: 20130723
  Transmission Date: 20140515
  Serious: Yes (Other)
  Sender: FDA-Public Use
  Company Number: 2013STPI000287

PATIENT
  Age: 38 Year
  Sex: Female

DRUGS (8)
  1. CARNITOR [Suspect]
     Indication: FIBROMYALGIA
     Route: 048
     Dates: start: 20130501, end: 20130503
  2. STILNOX (ZOLPIDEM TARTRAE) TABLET [Concomitant]
  3. COLCECALCIFEROL (COLECALCIFEROL) [Concomitant]
  4. CODOLIPRANE (CODEINE PHOSPHATE, PARACETAMOL) TABLET [Concomitant]
  5. PERCUTALIGINE (DEXAMETHASONE ACETATE, GLYCOL SALICYLATE, METHYL NICOTINATE, SALICYLAMIDE) [Concomitant]
  6. EUPANTOL (PANTOPRAZOLE SPDIUM SESQUIHYDRATE) TABLET [Suspect]
  7. BIPERIDYS (DOMPERIDONE) TABLET [Concomitant]
  8. DICLONFENAC (DIETHYLAMINE (DICLOFENAC DIETHLAMINE) [Concomitant]

REACTIONS (4)
  - Tetany [None]
  - Paralysis [None]
  - Headache [None]
  - Pain [None]
